FAERS Safety Report 23422587 (Version 5)
Quarter: 2024Q1

REPORT INFORMATION
  Report Type: Report from Study
  Country: MX (occurrence: MX)
  Receive Date: 20240119
  Receipt Date: 20240313
  Transmission Date: 20240409
  Serious: Yes (Other)
  Sender: FDA-Public Use
  Company Number: MX-AstraZeneca-2023A214143

PATIENT
  Age: 310 Day
  Sex: Male
  Weight: 9.5 kg

DRUGS (4)
  1. SYNAGIS [Suspect]
     Active Substance: PALIVIZUMAB
     Indication: Antiviral prophylaxis
     Dosage: 1.2 ML, MONTHLY
     Route: 030
     Dates: start: 20230913, end: 20230913
  2. SYNAGIS [Suspect]
     Active Substance: PALIVIZUMAB
     Dosage: 1.26 ML, MONTHLY
     Route: 030
     Dates: start: 20231011, end: 20231011
  3. SYNAGIS [Suspect]
     Active Substance: PALIVIZUMAB
     Dosage: 1.3 ML, MONTHLY
     Route: 030
     Dates: start: 20231115, end: 20231115
  4. SYNAGIS [Suspect]
     Active Substance: PALIVIZUMAB
     Dosage: 1.4 ML, MONTHLY
     Route: 030
     Dates: start: 20240110, end: 20240110

REACTIONS (13)
  - Dyspnoea [Recovered/Resolved]
  - Respiratory tract infection [Recovered/Resolved]
  - Pharyngitis [Recovered/Resolved]
  - Product dose omission issue [Recovered/Resolved]
  - Product administration error [Unknown]
  - Crying [Recovered/Resolved]
  - Pyrexia [Recovered/Resolved]
  - Cough [Recovered/Resolved]
  - Secretion discharge [Recovered/Resolved]
  - Illness [Recovered/Resolved]
  - Nasal congestion [Recovered/Resolved]
  - Feeling abnormal [Recovered/Resolved]
  - Oxygen saturation decreased [Recovered/Resolved]

NARRATIVE: CASE EVENT DATE: 20230913
